FAERS Safety Report 8094571-4 (Version None)
Quarter: 2012Q1

REPORT INFORMATION
  Report Type: 
  Country: None (occurrence: None)
  Receive Date: 20120131
  Receipt Date: 20120103
  Transmission Date: 20120608
  Serious: Yes (Death, Other)
  Sender: FDA-Public Use
  Company Number: US-AMGEN-USASP2011023109

PATIENT
  Age: 67 Year
  Sex: Male
  Weight: 59.1 kg

DRUGS (1)
  1. NPLATE [Suspect]
     Indication: PRODUCT USED FOR UNKNOWN INDICATION
     Dosage: UNK
     Dates: start: 20100418

REACTIONS (7)
  - METASTASES TO PERITONEUM [None]
  - THROMBOSIS [None]
  - EMBOLISM [None]
  - COLON CANCER [None]
  - ABDOMINAL DISTENSION [None]
  - VOMITING [None]
  - HYPOPHAGIA [None]
